FAERS Safety Report 4648454-X (Version None)
Quarter: 2005Q2

REPORT INFORMATION
  Report Type: 
  Country: None (occurrence: None)
  Receive Date: 20050427
  Receipt Date: 20050412
  Transmission Date: 20051028
  Serious: Yes (Hospitalization, Other)
  Sender: FDA-Public Use
  Company Number: SE-SHR-03-010500

PATIENT
  Age: 21 Year
  Sex: Female

DRUGS (1)
  1. YASMIN [Suspect]
     Indication: ORAL CONTRACEPTION
     Dosage: 1 TAB, 21D/28D, ORAL
     Route: 048
     Dates: start: 20020915, end: 20021130

REACTIONS (7)
  - DEEP VEIN THROMBOSIS [None]
  - FIBRIN D DIMER INCREASED [None]
  - PELVIC HAEMORRHAGE [None]
  - SKIN DISCOLOURATION [None]
  - THROMBOPHLEBITIS PELVIC VEIN [None]
  - THROMBOPHLEBITIS SUPERFICIAL [None]
  - THROMBOSIS IN DEVICE [None]
